FAERS Safety Report 12433003 (Version 1)
Quarter: 2016Q2

REPORT INFORMATION
  Report Type: Spontaneous
  Country: US (occurrence: US)
  Receive Date: 20160603
  Receipt Date: 20160603
  Transmission Date: 20160815
  Serious: No
  Sender: FDA-Public Use
  Company Number: US-B.I. PHARMACEUTICALS,INC./RIDGEFIELD-2016-BI-32438BP

PATIENT
  Age: 60 Year
  Sex: Male

DRUGS (1)
  1. SPIRIVA [Suspect]
     Active Substance: TIOTROPIUM BROMIDE MONOHYDRATE
     Indication: EMPHYSEMA
     Dosage: 18 MCG
     Route: 055
     Dates: start: 2012

REACTIONS (4)
  - Oropharyngeal pain [Unknown]
  - Dyspnoea [Unknown]
  - Depression [Recovered/Resolved]
  - Nasal congestion [Unknown]

NARRATIVE: CASE EVENT DATE: 201504
